FAERS Safety Report 9414000 (Version 2)
Quarter: 2013Q4

REPORT INFORMATION
  Report Type: Spontaneous
  Country: US (occurrence: US)
  Receive Date: 20130723
  Receipt Date: 20131113
  Transmission Date: 20140711
  Serious: No
  Sender: FDA-Public Use
  Company Number: US-BIOGENIDEC-2013BI066912

PATIENT
  Sex: Female

DRUGS (1)
  1. TYSABRI [Suspect]
     Indication: MULTIPLE SCLEROSIS
     Route: 042
     Dates: start: 20070126

REACTIONS (6)
  - Loss of control of legs [Unknown]
  - Emotional distress [Unknown]
  - Frustration [Unknown]
  - Emotional disorder [Unknown]
  - Memory impairment [Unknown]
  - Fatigue [Unknown]
